FAERS Safety Report 5464492-1 (Version None)
Quarter: 2007Q3

REPORT INFORMATION
  Report Type: 
  Country: None (occurrence: None)
  Receive Date: 20070921
  Receipt Date: 20070911
  Transmission Date: 20080115
  Serious: Yes (Other)
  Sender: FDA-Public Use
  Company Number: US-SANOFI-SYNTHELABO-A03200705537

PATIENT
  Age: 21 Year
  Sex: Male

DRUGS (5)
  1. AMBIEN [Suspect]
     Indication: DRUG USE FOR UNKNOWN INDICATION
     Route: 048
  2. LITHIUM [Concomitant]
     Dosage: UNK
     Route: 065
  3. COGENTIN [Concomitant]
     Dosage: UNK
     Route: 065
  4. HALDOL [Concomitant]
     Dosage: UNK
     Route: 065
  5. XANAX [Concomitant]
     Dosage: UNK
     Route: 065

REACTIONS (4)
  - ABNORMAL BEHAVIOUR [None]
  - COORDINATION ABNORMAL [None]
  - NYSTAGMUS [None]
  - ROAD TRAFFIC ACCIDENT [None]
